FAERS Safety Report 5313045-4 (Version None)
Quarter: 2007Q1

REPORT INFORMATION
  Report Type: 
  Country: None (occurrence: None)
  Receive Date: 20070201
  Receipt Date: 20061013
  Transmission Date: 20070707
  Serious: No
  Sender: FDA-Public Use
  Company Number: VNL_0239_2006

PATIENT
  Sex: Male

DRUGS (17)
  1. APOKYN [Suspect]
     Indication: PARKINSON'S DISEASE
     Dosage: DF SC
     Route: 058
     Dates: start: 20060930
  2. SINEMET [Concomitant]
  3. REQUIP [Concomitant]
  4. LYRICA [Concomitant]
  5. FINASTERIDE [Concomitant]
  6. CLONAZEPAM [Concomitant]
  7. CELEBREX [Concomitant]
  8. ASPIRIN [Concomitant]
  9. BENZONATATE [Concomitant]
  10. GLYCOPYROLATE [Concomitant]
  11. FLOMAX [Concomitant]
  12. FOLIC ACID [Concomitant]
  13. VITAMIN B-12 [Concomitant]
  14. SENNA [Concomitant]
  15. DAVCOCET [Concomitant]
  16. ALBUTEROL VIA NEBULIZER [Concomitant]
  17. TIGAN [Concomitant]

REACTIONS (3)
  - BLOOD PRESSURE DIASTOLIC INCREASED [None]
  - HYPOTENSION [None]
  - SOMNOLENCE [None]
